FAERS Safety Report 19708527 (Version 2)
Quarter: 2021Q3

REPORT INFORMATION
  Report Type: Spontaneous
  Country: NL (occurrence: NL)
  Receive Date: 20210816
  Receipt Date: 20210913
  Transmission Date: 20211014
  Serious: Yes (Death, Hospitalization)
  Sender: FDA-Public Use
  Company Number: NL-ROCHE-2886720

PATIENT
  Age: 75 Year
  Sex: Female
  Weight: 82 kg

DRUGS (4)
  1. PACLITAXEL. [Concomitant]
     Active Substance: PACLITAXEL
     Dosage: 200 MG/M2
  2. ATEZOLIZUMAB. [Suspect]
     Active Substance: ATEZOLIZUMAB
     Indication: LUNG NEOPLASM MALIGNANT
     Dosage: (FORM STRENGTH: 60 MG/ML).
     Route: 065
     Dates: start: 20210602, end: 20210615
  3. CARBOPLATINE [Concomitant]
     Active Substance: CARBOPLATIN
     Dosage: AUC=6
  4. BEVACIZUMAB. [Concomitant]
     Active Substance: BEVACIZUMAB

REACTIONS (1)
  - Thrombocytopenic purpura [Fatal]

NARRATIVE: CASE EVENT DATE: 20210611
